FAERS Safety Report 6969085-2 (Version None)
Quarter: 2010Q3

REPORT INFORMATION
  Report Type: 
  Country: None (occurrence: None)
  Receive Date: 20100907
  Receipt Date: 20100901
  Transmission Date: 20110219
  Serious: Yes (Other)
  Sender: FDA-Public Use
  Company Number: RU-BRISTOL-MYERS SQUIBB COMPANY-15264740

PATIENT
  Age: 13 Year
  Sex: Female

DRUGS (4)
  1. ABATACEPT [Suspect]
     Indication: RHEUMATOID ARTHRITIS
     Route: 042
     Dates: start: 20100309
  2. METYPRED [Concomitant]
  3. NIMESULIDE [Concomitant]
     Dosage: 1 DF=150 UNITS NOT SPECIFIED
  4. METHOTREXATE [Concomitant]

REACTIONS (1)
  - ANAEMIA [None]
